FAERS Safety Report 8825239 (Version 1)
Quarter: 2012Q4

REPORT INFORMATION
  Report Type: 
  Country: US (occurrence: US)
  Receive Date: 20121004
  Receipt Date: 20121004
  Transmission Date: 20130627
  Serious: Yes (Death)
  Sender: FDA-Public Use
  Company Number: US-ROCHE-1134659

PATIENT
  Sex: Male

DRUGS (8)
  1. RITUXAN [Suspect]
     Indication: CHRONIC LYMPHOCYTIC LEUKAEMIA
     Route: 065
     Dates: start: 20010424
  2. CYTOXAN [Concomitant]
     Route: 065
     Dates: start: 20010425
  3. CYTOXAN [Concomitant]
     Route: 065
     Dates: start: 20010426
  4. CYTOXAN [Concomitant]
     Route: 065
     Dates: start: 20010427
  5. FLUDARA [Concomitant]
     Route: 065
     Dates: start: 20010425
  6. FLUDARA [Concomitant]
     Route: 065
     Dates: start: 20010426
  7. FLUDARA [Concomitant]
     Route: 065
     Dates: start: 20010427
  8. BENADRYL [Concomitant]
     Route: 065
     Dates: start: 20010424

REACTIONS (1)
  - Death [Fatal]
